FAERS Safety Report 17404917 (Version 2)
Quarter: 2020Q1

REPORT INFORMATION
  Report Type: Spontaneous
  Country: DE (occurrence: DE)
  Receive Date: 20200211
  Receipt Date: 20200217
  Transmission Date: 20200409
  Serious: Yes (Other)
  Sender: FDA-Public Use
  Company Number: DE-BAXTER-2020BAX001313

PATIENT
  Sex: Female
  Weight: 120 kg

DRUGS (17)
  1. ETOPOSIDE. [Suspect]
     Active Substance: ETOPOSIDE
     Indication: DIFFUSE LARGE B-CELL LYMPHOMA
     Dosage: 2ND LINE, R-ICE (FULL DOSE)
     Route: 065
     Dates: start: 201210, end: 201212
  2. PREDNISONE. [Suspect]
     Active Substance: PREDNISONE
     Indication: DIFFUSE LARGE B-CELL LYMPHOMA
     Dosage: 1ST LINE, R-CHOP (FULL DOSE)
     Route: 065
     Dates: start: 201005, end: 201008
  3. METHOTREXATE. [Suspect]
     Active Substance: METHOTREXATE
     Indication: DIFFUSE LARGE B-CELL LYMPHOMA
     Dosage: 4TH LINE METHOTREXATE
     Route: 065
     Dates: start: 201709, end: 201803
  4. HOLOXAN [Suspect]
     Active Substance: IFOSFAMIDE
     Indication: DIFFUSE LARGE B-CELL LYMPHOMA
     Dosage: 2ND LINE, R-ICE (FULL DOSE)
     Route: 065
     Dates: start: 201210, end: 201212
  5. DOXIL [Suspect]
     Active Substance: DOXORUBICIN HYDROCHLORIDE
     Indication: DIFFUSE LARGE B-CELL LYMPHOMA
     Dosage: 1ST LINE, R-CHOP (FULL DOSE)
     Route: 065
     Dates: start: 201005, end: 201008
  6. PIXANTRONE [Suspect]
     Active Substance: PIXANTRONE
     Indication: DIFFUSE LARGE B-CELL LYMPHOMA
     Dosage: FURTHER LINE, R-PIXANTRONE (FULL DOSE)
     Route: 065
     Dates: start: 201402, end: 201408
  7. RITUXIMAB. [Suspect]
     Active Substance: RITUXIMAB
     Indication: DIFFUSE LARGE B-CELL LYMPHOMA
     Dosage: FURTHER LINE, R-PIXANTRONE (FULL DOSE)
     Route: 065
     Dates: start: 201402, end: 201408
  8. RITUXIMAB. [Suspect]
     Active Substance: RITUXIMAB
     Dosage: 4TH LINE RITUXIMAB
     Route: 065
     Dates: start: 201709, end: 201803
  9. ENDOXAN 1G [Suspect]
     Active Substance: CYCLOPHOSPHAMIDE
     Indication: DIFFUSE LARGE B-CELL LYMPHOMA
     Dosage: 1ST LINE, R-CHOP (FULL DOSE)
     Route: 065
     Dates: start: 201005, end: 201008
  10. CYTARABINE. [Suspect]
     Active Substance: CYTARABINE
     Indication: DIFFUSE LARGE B-CELL LYMPHOMA
     Route: 065
  11. CARBOPLATIN. [Suspect]
     Active Substance: CARBOPLATIN
     Indication: DIFFUSE LARGE B-CELL LYMPHOMA
     Dosage: 2ND LINE, R-ICE (FULL DOSE)
     Route: 065
     Dates: start: 201210, end: 201212
  12. CARBOPLATIN. [Suspect]
     Active Substance: CARBOPLATIN
     Dosage: 2ND LINE, R-ICE (FULL DOSE)
     Route: 065
     Dates: start: 201210, end: 201212
  13. RITUXIMAB. [Suspect]
     Active Substance: RITUXIMAB
     Dosage: 2ND LINE, R-ICE (FULL DOSE)
     Route: 065
     Dates: start: 201210, end: 201212
  14. LENALIDOMIDE [Suspect]
     Active Substance: LENALIDOMIDE
     Indication: DIFFUSE LARGE B-CELL LYMPHOMA
     Dosage: 4TH LINE LENALIDOMIDE
     Route: 065
     Dates: start: 201709, end: 201803
  15. RITUXIMAB. [Suspect]
     Active Substance: RITUXIMAB
     Dosage: RADIATION 36 GY
     Route: 065
     Dates: start: 201411, end: 201412
  16. RITUXIMAB. [Suspect]
     Active Substance: RITUXIMAB
     Dosage: 1ST LINE, R-CHOP (FULL DOSE)
     Route: 065
     Dates: start: 201005, end: 201008
  17. VINCRISTINE [Suspect]
     Active Substance: VINCRISTINE
     Indication: DIFFUSE LARGE B-CELL LYMPHOMA
     Dosage: 1ST LINE, R-CHOP (FULL DOSE)
     Route: 065
     Dates: start: 201005, end: 201008

REACTIONS (3)
  - Fatigue [Unknown]
  - Influenza [Unknown]
  - Drug ineffective [Unknown]
